FAERS Safety Report 11483675 (Version 1)
Quarter: 2015Q3

REPORT INFORMATION
  Report Type: Spontaneous
  Country: US (occurrence: US)
  Receive Date: 20150903
  Receipt Date: 20150903
  Transmission Date: 20151125
  Serious: No
  Sender: FDA-Public Use
  Company Number: US-ELI_LILLY_AND_COMPANY-US201207005576

PATIENT
  Age: 46 Year
  Sex: Female

DRUGS (2)
  1. BENICAR HCT [Concomitant]
     Active Substance: HYDROCHLOROTHIAZIDE\OLMESARTAN MEDOXOMIL
  2. CYMBALTA [Suspect]
     Active Substance: DULOXETINE HYDROCHLORIDE
     Indication: DEPRESSION
     Dosage: 60 MG, QD

REACTIONS (7)
  - Swelling face [Unknown]
  - Rash pruritic [Unknown]
  - Rubber sensitivity [Recovered/Resolved]
  - Pruritus [Recovered/Resolved]
  - Swelling [Unknown]
  - Rash erythematous [Unknown]
  - Swelling [Recovered/Resolved]

NARRATIVE: CASE EVENT DATE: 201201
